FAERS Safety Report 17728220 (Version 1)
Quarter: 2020Q2

REPORT INFORMATION
  Report Type: Spontaneous
  Country: US (occurrence: US)
  Receive Date: 20200430
  Receipt Date: 20200430
  Transmission Date: 20200714
  Serious: No
  Sender: FDA-Public Use
  Company Number: NVSC2020US116282

PATIENT
  Sex: Female

DRUGS (1)
  1. ZARXIO [Suspect]
     Active Substance: FILGRASTIM-SNDZ
     Indication: FULL BLOOD COUNT DECREASED
     Dosage: 1 DF, UNKNOWN (30MIU.5ML)
     Route: 065
     Dates: start: 20200427

REACTIONS (1)
  - Accidental exposure to product [Unknown]
